FAERS Safety Report 9163173 (Version 2)
Quarter: 2013Q1

REPORT INFORMATION
  Report Type: Spontaneous
  Country: IT (occurrence: IT)
  Receive Date: 20130314
  Receipt Date: 20130320
  Transmission Date: 20140127
  Serious: Yes (Death)
  Sender: FDA-Public Use
  Company Number: IT-ROCHE-1201291

PATIENT
  Sex: Female

DRUGS (5)
  1. ACTILYSE [Suspect]
     Indication: FIBRINOUS BRONCHITIS
     Dosage: DIVIDED INTO 4 DOSES
     Route: 050
  2. PULMOVENT [Suspect]
     Indication: FIBRINOUS BRONCHITIS
     Route: 050
  3. SILDENAFIL [Concomitant]
     Indication: FIBRINOUS BRONCHITIS
     Dosage: DIVIDED INTO 4 DOSES
     Route: 065
  4. BOSENTAN [Concomitant]
     Indication: FIBRINOUS BRONCHITIS
     Route: 065
  5. PROSTACYCLIN [Concomitant]
     Indication: FIBRINOUS BRONCHITIS
     Route: 065

REACTIONS (2)
  - Vena cava thrombosis [Fatal]
  - Pulmonary artery thrombosis [Fatal]
